FAERS Safety Report 9092679 (Version 2)
Quarter: 2013Q2

REPORT INFORMATION
  Report Type: Spontaneous
  Country: FR (occurrence: FR)
  Receive Date: 20130131
  Receipt Date: 20130419
  Transmission Date: 20140414
  Serious: Yes (Hospitalization)
  Sender: FDA-Public Use
  Company Number: FR-BRISTOL-MYERS SQUIBB COMPANY-17311705

PATIENT
  Age: 64 Year
  Sex: Male

DRUGS (1)
  1. ABILIFY TABS 5 MG [Suspect]
     Route: 048
     Dates: start: 20121120, end: 20121203

REACTIONS (3)
  - Medication error [Unknown]
  - Confusional state [Recovered/Resolved]
  - Hallucination, visual [Recovered/Resolved]
